FAERS Safety Report 17797130 (Version 1)
Quarter: 2020Q2

REPORT INFORMATION
  Report Type: Spontaneous
  Country: US (occurrence: US)
  Receive Date: 20200518
  Receipt Date: 20200518
  Transmission Date: 20200714
  Serious: Yes (Other)
  Sender: FDA-Public Use
  Company Number: US-ASTELLAS-2020US008071

PATIENT
  Age: 89 Year
  Sex: Male

DRUGS (1)
  1. XTANDI [Suspect]
     Active Substance: ENZALUTAMIDE
     Indication: PROSTATE CANCER
     Route: 048
     Dates: start: 20200225

REACTIONS (4)
  - Underdose [Unknown]
  - Product size issue [Unknown]
  - Foreign body in throat [Unknown]
  - Product use complaint [Unknown]

NARRATIVE: CASE EVENT DATE: 20200225
